FAERS Safety Report 4667874-0 (Version None)
Quarter: 2005Q2

REPORT INFORMATION
  Report Type: 
  Country: None (occurrence: None)
  Receive Date: 20050520
  Receipt Date: 20050427
  Transmission Date: 20051028
  Serious: Yes (Other)
  Sender: FDA-Public Use
  Company Number: JP-ROCHE-403230

PATIENT
  Age: 71 Year
  Sex: Female

DRUGS (2)
  1. PEGASYS [Suspect]
     Route: 058
     Dates: start: 20040922, end: 20050222
  2. PEGASYS [Suspect]
     Route: 058
     Dates: start: 20050302, end: 20050302

REACTIONS (2)
  - GASTRITIS HAEMORRHAGIC [None]
  - PULMONARY OEDEMA [None]
